FAERS Safety Report 6121801-8 (Version None)
Quarter: 2009Q1

REPORT INFORMATION
  Report Type: 
  Country: None (occurrence: None)
  Receive Date: 20090313
  Receipt Date: 20090313
  Transmission Date: 20090719
  Serious: Yes (Hospitalization)
  Sender: FDA-Public Use
  Company Number: None

PATIENT
  Age: 87 Year
  Sex: Male
  Weight: 66.9 kg

DRUGS (1)
  1. SCOPOLAMINE [Suspect]
     Indication: NAUSEA
     Dosage: 0.4 MG ONCE IV
     Route: 042
     Dates: start: 20081231, end: 20081231

REACTIONS (2)
  - MENTAL STATUS CHANGES [None]
  - UNRESPONSIVE TO STIMULI [None]
